FAERS Safety Report 15291600 (Version 1)
Quarter: 2018Q3

REPORT INFORMATION
  Report Type: Spontaneous
  Country: FR (occurrence: FR)
  Receive Date: 20180817
  Receipt Date: 20180817
  Transmission Date: 20181010
  Serious: Yes (Hospitalization)
  Sender: FDA-Public Use
  Company Number: FR-PFIZER INC-2018322837

PATIENT
  Age: 77 Year
  Sex: Female
  Weight: 68 kg

DRUGS (12)
  1. LEVOTHYROX [Concomitant]
     Active Substance: LEVOTHYROXINE
     Dosage: 1 DF, ALTERNATE DAY
     Route: 048
  2. VALIUM [Suspect]
     Active Substance: DIAZEPAM
     Indication: MAJOR DEPRESSION
     Dosage: 60 GTT, 1X/DAY (ROCHE)
     Route: 048
  3. HYDROCORTISONE. [Concomitant]
     Active Substance: HYDROCORTISONE
     Indication: PITUITARY-DEPENDENT CUSHING^S SYNDROME
     Dosage: 20 MG, UNK
     Route: 048
  4. LANSOPRAZOLE MYLAN [Concomitant]
     Active Substance: LANSOPRAZOLE
     Dosage: 1 DF, UNK
     Route: 048
  5. TRAVATAN [Concomitant]
     Active Substance: TRAVOPROST
     Dosage: 1 DF, UNK
     Route: 047
  6. ALDACTONE [Concomitant]
     Active Substance: SPIRONOLACTONE
     Indication: HYPERTENSION
     Dosage: 1 DF, UNK
     Route: 048
  7. IMOVANE [Concomitant]
     Active Substance: ZOPICLONE
     Dosage: 1 DF, UNK
     Route: 048
  8. TAHOR [Concomitant]
     Active Substance: ATORVASTATIN CALCIUM
     Indication: DYSLIPIDAEMIA
     Dosage: 1 DF, UNK
     Route: 048
  9. EFFEXOR LP [Suspect]
     Active Substance: VENLAFAXINE HYDROCHLORIDE
     Indication: MAJOR DEPRESSION
     Dosage: 2 DF, UNK
     Route: 048
     Dates: start: 201711
  10. LEVOTHYROX [Concomitant]
     Active Substance: LEVOTHYROXINE
     Indication: HYPOTHYROIDISM
     Dosage: 1 DF, ALTERNATE DAY (IRREGULAR DAYS)
     Route: 048
  11. NIZORAL [Concomitant]
     Active Substance: KETOCONAZOLE
     Indication: PITUITARY-DEPENDENT CUSHING^S SYNDROME
     Dosage: 6 DF, UNK
     Route: 048
  12. LOVENOX [Concomitant]
     Active Substance: ENOXAPARIN SODIUM
     Dosage: 1 DF, UNK
     Route: 058

REACTIONS (3)
  - Parkinsonism [Not Recovered/Not Resolved]
  - Confusional state [Not Recovered/Not Resolved]
  - Hallucination [Not Recovered/Not Resolved]

NARRATIVE: CASE EVENT DATE: 2018
